FAERS Safety Report 13795342 (Version 2)
Quarter: 2017Q4

REPORT INFORMATION
  Report Type: Report from Study
  Country: US (occurrence: US)
  Receive Date: 20170726
  Receipt Date: 20171018
  Transmission Date: 20180320
  Serious: Yes (Hospitalization, Other)
  Sender: FDA-Public Use
  Company Number: US-ACTELION-A-NJ2017-157259

PATIENT
  Age: 53 Year
  Sex: Female
  Weight: 48.73 kg

DRUGS (3)
  1. TRACLEER [Suspect]
     Active Substance: BOSENTAN
     Indication: PULMONARY HYPERTENSION
     Dosage: 125 MG, BID
     Route: 048
  2. COUMADIN [Concomitant]
     Active Substance: WARFARIN SODIUM
  3. AMLODIPINE [Concomitant]
     Active Substance: AMLODIPINE BESYLATE

REACTIONS (6)
  - Inferior vena caval occlusion [Unknown]
  - Oedema peripheral [Unknown]
  - Device occlusion [Unknown]
  - Dialysis [Unknown]
  - Swelling face [Unknown]
  - Skin disorder [Unknown]
